FAERS Safety Report 6764067-8 (Version None)
Quarter: 2010Q2

REPORT INFORMATION
  Report Type: 
  Country: None (occurrence: None)
  Receive Date: 20100608
  Receipt Date: 20100526
  Transmission Date: 20101027
  Serious: Yes (Hospitalization)
  Sender: FDA-Public Use
  Company Number: 7006324

PATIENT
  Age: 54 Year
  Sex: Male

DRUGS (7)
  1. REBIF [Suspect]
     Indication: SECONDARY PROGRESSIVE MULTIPLE SCLEROSIS
     Dosage: 44 MCG, 3 IN 1 WK, SUBCUTANEOUS
     Route: 058
     Dates: start: 20040119
  2. AMARIL (GLIMEPIRIDE) [Suspect]
  3. CLOPIDOGREL [Concomitant]
  4. GALVUS (VILDAGLIPTIN) (VILDAGLIPTIN) [Concomitant]
  5. HIDANTAL (FENITOIN) (PHENYTOIN) [Concomitant]
  6. ASPIRIN [Concomitant]
  7. APROZIDE (IRBESARTAN+HYDROCHLOROTHIAZIDE) (KAREVA HCT) [Concomitant]

REACTIONS (1)
  - ANGINA PECTORIS [None]
